FAERS Safety Report 6593579-5 (Version None)
Quarter: 2010Q1

REPORT INFORMATION
  Report Type: 
  Country: None (occurrence: None)
  Receive Date: 20100218
  Receipt Date: 20100218
  Transmission Date: 20100710
  Serious: No
  Sender: FDA-Public Use
  Company Number: None

PATIENT
  Age: 39 Year
  Sex: Female
  Weight: 83.9154 kg

DRUGS (2)
  1. TYLENOL-500 [Suspect]
     Indication: TOOTHACHE
     Dosage: 3 EVERY 6 HOURS
     Dates: start: 20100102, end: 20100104
  2. MOTRIN IB [Suspect]
     Dosage: 3 EVERY 6 HOURS
     Dates: start: 20100102, end: 20100104

REACTIONS (2)
  - PRODUCT QUALITY ISSUE [None]
  - VOMITING [None]
